FAERS Safety Report 6315829-2 (Version None)
Quarter: 2009Q3

REPORT INFORMATION
  Report Type: 
  Country: None (occurrence: None)
  Receive Date: 20090820
  Receipt Date: 20090807
  Transmission Date: 20100115
  Serious: Yes (Hospitalization)
  Sender: FDA-Public Use
  Company Number: GB-RANBAXY-2009RR-26266

PATIENT
  Age: 88 Year
  Sex: Male

DRUGS (5)
  1. GABAPENTIN [Suspect]
     Indication: PAIN IN EXTREMITY
     Dosage: 300 MG, TID
     Route: 048
     Dates: start: 20070322
  2. AMLODIPINE [Concomitant]
     Indication: HYPERTENSION
     Dosage: 5 MG, QD
     Route: 048
     Dates: start: 20060101
  3. ASPIRIN [Concomitant]
     Indication: PROPHYLAXIS
     Dosage: 75 MG, QD
     Route: 048
     Dates: start: 20060101
  4. BETAHISTINE [Concomitant]
     Dosage: 16 MG, TID
     Route: 048
     Dates: start: 20060101
  5. LACTULOSE [Concomitant]
     Indication: CONSTIPATION
     Dosage: 5 ML, BID
     Route: 048
     Dates: start: 20080101

REACTIONS (1)
  - FACIAL PARESIS [None]
